FAERS Safety Report 24095778 (Version 1)
Quarter: 2024Q3

REPORT INFORMATION
  Report Type: Spontaneous
  Country: GB (occurrence: GB)
  Receive Date: 20240716
  Receipt Date: 20240716
  Transmission Date: 20241016
  Serious: Yes (Other)
  Sender: TORRENT
  Company Number: None

PATIENT
  Sex: Female

DRUGS (1)
  1. MONTELUKAST [Suspect]
     Active Substance: MONTELUKAST SODIUM
     Indication: Dermatitis allergic
     Dosage: UNKNOWN
     Route: 065
     Dates: start: 20231127, end: 20231221

REACTIONS (8)
  - Depression [Recovered/Resolved with Sequelae]
  - Nightmare [Recovered/Resolved]
  - Dissociation [Recovered/Resolved]
  - Insomnia [Unknown]
  - Mood altered [Unknown]
  - Depressed mood [Not Recovered/Not Resolved]
  - Anxiety [Not Recovered/Not Resolved]
  - Off label use [Unknown]

NARRATIVE: CASE EVENT DATE: 20231201
